FAERS Safety Report 10024092 (Version 1)
Quarter: 2014Q1

REPORT INFORMATION
  Report Type: Spontaneous
  Country: US (occurrence: None)
  Receive Date: 20140318
  Receipt Date: 20140318
  Transmission Date: 20141002
  Serious: Yes (Other)
  Sender: FDA-Public Use
  Company Number: None

PATIENT
  Age: 10 Year
  Sex: Female
  Weight: 27.3 kg

DRUGS (11)
  1. POLYMYXIN B [Suspect]
     Indication: CYSTIC FIBROSIS
     Dates: start: 20140311, end: 20140311
  2. ALBUTEROL [Concomitant]
  3. DORNASE ALFA [Concomitant]
  4. LANSOPRAZOLE [Concomitant]
  5. MEROPENEM [Concomitant]
  6. CIPROFLOXACIN [Concomitant]
  7. VANCOMYCIN [Concomitant]
  8. LINEZOLID [Concomitant]
  9. COLISTIN [Concomitant]
  10. COLISTMETHATE [Concomitant]
  11. PANCRELIPASE [Concomitant]

REACTIONS (8)
  - Renal failure acute [None]
  - Infusion site pain [None]
  - Glossodynia [None]
  - Infusion site pain [None]
  - Chills [None]
  - Tongue movement disturbance [None]
  - Rash [None]
  - Poor venous access [None]
